FAERS Safety Report 6184097-7 (Version None)
Quarter: 2009Q2

REPORT INFORMATION
  Report Type: 
  Country: None (occurrence: None)
  Receive Date: 20090506
  Receipt Date: 20090506
  Transmission Date: 20091009
  Serious: Yes (Hospitalization)
  Sender: FDA-Public Use
  Company Number: None

PATIENT
  Age: 41 Year
  Sex: Male
  Weight: 70.3075 kg

DRUGS (2)
  1. NIASPAN [Suspect]
     Indication: BLOOD CHOLESTEROL INCREASED
     Dosage: 500 MG. ONCE DAILY NIGHTLY PO
     Route: 048
     Dates: start: 20081218, end: 20090501
  2. NIASPAN [Suspect]
     Indication: HYPERTENSION
     Dosage: 500 MG. ONCE DAILY NIGHTLY PO
     Route: 048
     Dates: start: 20081218, end: 20090501

REACTIONS (4)
  - ALCOHOL USE [None]
  - BURNING SENSATION [None]
  - HEART RATE INCREASED [None]
  - PARAESTHESIA [None]
